FAERS Safety Report 8073393-4 (Version None)
Quarter: 2012Q1

REPORT INFORMATION
  Report Type: 
  Country: None (occurrence: None)
  Receive Date: 20120126
  Receipt Date: 20120119
  Transmission Date: 20120608
  Serious: Yes (Hospitalization)
  Sender: FDA-Public Use
  Company Number: US-BAYER-2011-042206

PATIENT
  Age: 22 Year
  Sex: Female
  Weight: 70.295 kg

DRUGS (7)
  1. PROBIOTICS [Concomitant]
  2. ASCORBIC ACID [Concomitant]
     Dosage: UNK
     Dates: start: 20000101, end: 20100101
  3. FLUOXETINE [Concomitant]
     Indication: DEPRESSION
     Dosage: 20 MG, UNK
     Route: 048
     Dates: start: 20040101, end: 20100101
  4. YASMIN [Suspect]
     Indication: CONTRACEPTION
     Dosage: UNK
     Dates: start: 20010101, end: 20061001
  5. IBUPROFEN [Concomitant]
     Dosage: UNK
     Dates: start: 19940101, end: 20110101
  6. YASMIN [Suspect]
     Indication: ACNE
  7. ERYTHROMYCIN/BENZOYL [Concomitant]
     Indication: ACNE
     Dosage: UNK
     Route: 061
     Dates: start: 20051001, end: 20070601

REACTIONS (8)
  - ABDOMINAL PAIN [None]
  - BACK PAIN [None]
  - PULMONARY EMBOLISM [None]
  - INJURY [None]
  - PELVIC VENOUS THROMBOSIS [None]
  - ANXIETY [None]
  - EMOTIONAL DISTRESS [None]
  - INSOMNIA [None]
